FAERS Safety Report 12509581 (Version 1)
Quarter: 2016Q2

REPORT INFORMATION
  Report Type: Spontaneous
  Country: FR (occurrence: FR)
  Receive Date: 20160629
  Receipt Date: 20160629
  Transmission Date: 20160815
  Serious: Yes (Hospitalization)
  Sender: FDA-Public Use
  Company Number: FR-TEVA-670149ISR

PATIENT
  Age: 69 Year
  Sex: Female

DRUGS (7)
  1. OXALIPLATINE TEVA [Suspect]
     Active Substance: OXALIPLATIN
     Indication: ADENOCARCINOMA OF COLON
     Dosage: 165 MILLIGRAM DAILY;
     Route: 042
     Dates: start: 20160518, end: 20160518
  2. LEVOFOLINATE CALCIUM [Suspect]
     Active Substance: LEVOLEUCOVORIN CALCIUM
     Indication: PREMEDICATION
     Dosage: 400 MILLIGRAM DAILY;
     Route: 042
     Dates: start: 20150518, end: 20150518
  3. FLUOROURACIL. [Suspect]
     Active Substance: FLUOROURACIL
     Indication: ADENOCARCINOMA OF COLON
     Dosage: 115200 MILLIGRAM DAILY;
     Route: 040
     Dates: start: 20160518, end: 20160518
  4. METHYLPREDNISOLONE. [Suspect]
     Active Substance: METHYLPREDNISOLONE
     Indication: PREMEDICATION
     Dosage: 80 MILLIGRAM DAILY;
     Route: 042
     Dates: start: 20160518, end: 20160518
  5. TAREG [Concomitant]
     Active Substance: VALSARTAN
  6. ONDANSETRON [Suspect]
     Active Substance: ONDANSETRON
     Indication: PREMEDICATION
     Dosage: 8 MILLIGRAM DAILY;
     Route: 042
     Dates: start: 20160518, end: 20160518
  7. FLUOROURACIL. [Suspect]
     Active Substance: FLUOROURACIL
     Dosage: SIXTH COURSE OF CHEMOTHERAPY PROTOCOL FOLFOX
     Route: 041
     Dates: start: 20160518, end: 20160519

REACTIONS (3)
  - Pharyngeal paraesthesia [Recovered/Resolved]
  - Erythema [Recovered/Resolved]
  - Hot flush [Recovered/Resolved]

NARRATIVE: CASE EVENT DATE: 20160518
